FAERS Safety Report 16017282 (Version 1)
Quarter: 2019Q1

REPORT INFORMATION
  Report Type: Spontaneous
  Country: US (occurrence: US)
  Receive Date: 20190228
  Receipt Date: 20190228
  Transmission Date: 20190418
  Serious: Yes (Other)
  Sender: FDA-Public Use
  Company Number: US-BAYER-2019-041652

PATIENT
  Age: 21 Year
  Sex: Female

DRUGS (4)
  1. TIZANIDINE. [Concomitant]
     Active Substance: TIZANIDINE
     Indication: MUSCLE SPASMS
  2. AMPYRA [Concomitant]
     Active Substance: DALFAMPRIDINE
     Indication: GAIT DISTURBANCE
     Dosage: UNK
  3. IBUPROFEN. [Concomitant]
     Active Substance: IBUPROFEN
  4. BETASERON [Suspect]
     Active Substance: INTERFERON BETA-1B
     Indication: MULTIPLE SCLEROSIS
     Dosage: UNK UNK, QOD

REACTIONS (3)
  - Hypoaesthesia [Unknown]
  - Paraesthesia [Unknown]
  - Multiple sclerosis [Unknown]
